FAERS Safety Report 10199247 (Version 2)
Quarter: 2014Q2

REPORT INFORMATION
  Report Type: Report from Study
  Country: CA (occurrence: CA)
  Receive Date: 20140527
  Receipt Date: 20140527
  Transmission Date: 20141212
  Serious: Yes (Life-Threatening, Hospitalization)
  Sender: FDA-Public Use
  Company Number: CA-JNJFOC-20140213464

PATIENT
  Age: 59 Year
  Sex: Male
  Weight: 76.5 kg

DRUGS (4)
  1. GALEXOS [Suspect]
     Indication: HEPATIC FAILURE
     Route: 048
     Dates: start: 20140131
  2. GALEXOS [Suspect]
     Indication: HEPATITIS C
     Route: 048
     Dates: start: 20140131
  3. SOVALDI [Suspect]
     Indication: HEPATITIS C
     Route: 048
     Dates: start: 20140131
  4. CIPROFLOXACIN [Concomitant]
     Indication: PERITONITIS BACTERIAL
     Route: 065
     Dates: start: 20140214, end: 20140221

REACTIONS (6)
  - Hepatic function abnormal [Unknown]
  - Hepatic failure [Unknown]
  - Endocarditis [Unknown]
  - Hepatic cirrhosis [Unknown]
  - Liver transplant [Unknown]
  - Off label use [Unknown]
